FAERS Safety Report 15564177 (Version 3)
Quarter: 2018Q4

REPORT INFORMATION
  Report Type: Spontaneous
  Country: US (occurrence: US)
  Receive Date: 20181030
  Receipt Date: 20181227
  Transmission Date: 20190205
  Serious: No
  Sender: FDA-Public Use
  Company Number: US-AMGEN-USASP2018150421

PATIENT
  Age: 44 Year
  Sex: Male
  Weight: 108.5 kg

DRUGS (6)
  1. PARSABIV [Suspect]
     Active Substance: ETELCALCETIDE HYDROCHLORIDE
     Indication: HYPERPARATHYROIDISM
     Dosage: 5 MG, UNK
     Route: 042
     Dates: start: 20180705, end: 20180804
  2. PARSABIV [Suspect]
     Active Substance: ETELCALCETIDE HYDROCHLORIDE
     Dosage: 7.5 MG, UNK
     Route: 042
     Dates: start: 20180805, end: 20180827
  3. PARSABIV [Suspect]
     Active Substance: ETELCALCETIDE HYDROCHLORIDE
     Dosage: 10 MG, 3 TIMES/WK
     Route: 042
     Dates: start: 20180828, end: 20180919
  4. VITAMIN D3 [Concomitant]
     Active Substance: CHOLECALCIFEROL
     Dosage: 2000 UNIT, UNK
     Dates: start: 20170206
  5. ZEMPLAR [Concomitant]
     Active Substance: PARICALCITOL
     Dosage: UNK
     Dates: start: 20150110
  6. PARSABIV [Suspect]
     Active Substance: ETELCALCETIDE HYDROCHLORIDE
     Dosage: 7.5 MG, UNK
     Route: 042
     Dates: start: 2018

REACTIONS (1)
  - Hypocalcaemia [Recovered/Resolved]

NARRATIVE: CASE EVENT DATE: 20180917
